FAERS Safety Report 12947126 (Version 1)
Quarter: 2016Q4

REPORT INFORMATION
  Report Type: Spontaneous
  Country: US (occurrence: US)
  Receive Date: 20161116
  Receipt Date: 20161116
  Transmission Date: 20170207
  Serious: No
  Sender: FDA-Public Use
  Company Number: None

PATIENT
  Age: 67 Year
  Sex: Female
  Weight: 104.42 kg

DRUGS (5)
  1. HYOSCYAMINE SULFATE. [Suspect]
     Active Substance: HYOSCYAMINE SULFATE
     Indication: ABDOMINAL PAIN UPPER
     Dosage: 1 TO 2 TABLETS TWICE A DAY MOUTH
     Route: 048
     Dates: start: 20160909, end: 20160930
  2. ANASTROZOLE. [Concomitant]
     Active Substance: ANASTROZOLE
  3. ED-A-HIST [Concomitant]
  4. LORSARTAN/HCTZ [Concomitant]
  5. MELOXICAM. [Concomitant]
     Active Substance: MELOXICAM

REACTIONS (2)
  - Fall [None]
  - Dizziness [None]

NARRATIVE: CASE EVENT DATE: 20160918
